FAERS Safety Report 8103269-5 (Version None)
Quarter: 2012Q1

REPORT INFORMATION
  Report Type: 
  Country: None (occurrence: None)
  Receive Date: 20120201
  Receipt Date: 20110804
  Transmission Date: 20120608
  Serious: No
  Sender: FDA-Public Use
  Company Number: US-MUTUAL PHARMACEUTICAL COMPANY, INC.-PDNS20110005

PATIENT
  Sex: Female
  Weight: 45.854 kg

DRUGS (7)
  1. PREVACID [Concomitant]
     Indication: GASTROOESOPHAGEAL REFLUX DISEASE
     Route: 048
  2. SYNTHROID [Concomitant]
     Indication: HYPOTHYROIDISM
     Route: 048
  3. ACTONEL [Concomitant]
     Indication: OSTEOPOROSIS
     Route: 048
  4. PREDNISONE [Suspect]
     Indication: TEMPORAL ARTERITIS
     Route: 048
     Dates: start: 19930101
  5. AMLODIPINE [Concomitant]
     Indication: HYPERTENSION
     Route: 048
  6. ALBUTEROL INHALER [Concomitant]
     Indication: HYPERSENSITIVITY
  7. PROPRANOLOL [Concomitant]
     Indication: HEART RATE IRREGULAR
     Route: 048

REACTIONS (2)
  - OFF LABEL USE [None]
  - HEADACHE [None]
